FAERS Safety Report 13441506 (Version 3)
Quarter: 2017Q2

REPORT INFORMATION
  Report Type: Spontaneous
  Country: JP (occurrence: JP)
  Receive Date: 20170414
  Receipt Date: 20170501
  Transmission Date: 20170830
  Serious: Yes (Death, Hospitalization, Other)
  Sender: FDA-Public Use
  Company Number: JP-AMGEN-JPNSP2017057402

PATIENT
  Age: 59 Year
  Sex: Male

DRUGS (19)
  1. REVLIMID [Suspect]
     Active Substance: LENALIDOMIDE
     Dosage: 5 MG, QD
     Route: 048
     Dates: start: 20170322, end: 20170405
  2. BARACLUDE [Concomitant]
     Active Substance: ENTECAVIR
     Dosage: UNK
     Dates: start: 20170113
  3. DAIPHEN [Concomitant]
     Active Substance: SULFAMETHOXAZOLE\TRIMETHOPRIM
     Dosage: UNK
     Dates: start: 20170113, end: 20170405
  4. KYPROLIS [Suspect]
     Active Substance: CARFILZOMIB
     Dosage: 50 MG, QD
     Route: 041
     Dates: start: 20170123, end: 20170124
  5. KYPROLIS [Suspect]
     Active Substance: CARFILZOMIB
     Dosage: 50 MG/M2, QD
     Route: 041
     Dates: start: 20170321, end: 20170322
  6. REVLIMID [Suspect]
     Active Substance: LENALIDOMIDE
     Indication: PLASMA CELL MYELOMA
     Dosage: 10 MG, QD (ADMINISTERED 3 TIMES, SUSPENDED 1 TIME)
     Route: 048
     Dates: start: 20170116, end: 20170321
  7. ACICLOVIR [Suspect]
     Active Substance: ACYCLOVIR
     Indication: PROPHYLAXIS
     Dosage: 200 MG, QD
     Route: 048
     Dates: start: 20170113, end: 20170405
  8. LENADEX [Concomitant]
     Active Substance: DEXAMETHASONE ACETATE
     Dosage: 4 MG, QWK
  9. FEBURIC [Concomitant]
     Active Substance: FEBUXOSTAT
     Dosage: UNK
     Dates: start: 20160318, end: 20170405
  10. KYPROLIS [Suspect]
     Active Substance: CARFILZOMIB
     Indication: PLASMA CELL MYELOMA
     Dosage: 50 MG, QD
     Route: 041
     Dates: start: 20170116, end: 20170117
  11. KYPROLIS [Suspect]
     Active Substance: CARFILZOMIB
     Dosage: 50 MG/M2, QD
     Route: 041
     Dates: start: 20170329, end: 20170329
  12. LENADEX [Concomitant]
     Active Substance: DEXAMETHASONE ACETATE
     Dosage: 40 MG, 3 TIMES/WK
     Dates: start: 20170116, end: 20170321
  13. KYPROLIS [Suspect]
     Active Substance: CARFILZOMIB
     Dosage: 50 MG, QD
     Route: 041
     Dates: start: 20170130, end: 20170131
  14. KYPROLIS [Suspect]
     Active Substance: CARFILZOMIB
     Dosage: 50 MG/M2, UNK
     Route: 041
     Dates: start: 201702, end: 2017
  15. KYPROLIS [Suspect]
     Active Substance: CARFILZOMIB
     Dosage: 50 MG, QD
     Route: 041
     Dates: start: 20170405, end: 20170405
  16. ADOAIR [Concomitant]
     Active Substance: FLUTICASONE PROPIONATE\SALMETEROL XINAFOATE
     Dosage: UNK
     Dates: start: 20120828, end: 20170405
  17. BAYASPIRIN [Concomitant]
     Active Substance: ASPIRIN
     Dosage: UNK
     Dates: start: 20170116, end: 20170405
  18. ERYTHROCIN [Concomitant]
     Active Substance: ERYTHROMYCIN LACTOBIONATE
     Dosage: UNK
     Dates: start: 20160219, end: 20170405
  19. NEXIUM [Concomitant]
     Active Substance: ESOMEPRAZOLE MAGNESIUM
     Dosage: UNK
     Dates: start: 20160422, end: 20170405

REACTIONS (3)
  - Acute kidney injury [Fatal]
  - Electrocardiogram QT prolonged [Fatal]
  - Hepatic function abnormal [Recovered/Resolved]

NARRATIVE: CASE EVENT DATE: 20170302
